FAERS Safety Report 7780491-9 (Version None)
Quarter: 2011Q3

REPORT INFORMATION
  Report Type: 
  Country: None (occurrence: None)
  Receive Date: 20110927
  Receipt Date: 20110811
  Transmission Date: 20111222
  Serious: No
  Sender: FDA-Public Use
  Company Number: US-GLAXOSMITHKLINE-A0940517A

PATIENT
  Age: 67 Year
  Sex: Female

DRUGS (2)
  1. BENADRYL [Concomitant]
  2. LAMICTAL XR [Suspect]
     Indication: EPILEPSY
     Dosage: 50MG PER DAY
     Route: 048
     Dates: start: 20110801

REACTIONS (2)
  - RASH GENERALISED [None]
  - EYE SWELLING [None]
